FAERS Safety Report 8111750-8 (Version None)
Quarter: 2012Q1

REPORT INFORMATION
  Report Type: 
  Country: None (occurrence: None)
  Receive Date: 20120203
  Receipt Date: 20120124
  Transmission Date: 20120608
  Serious: Yes (Hospitalization)
  Sender: FDA-Public Use
  Company Number: CA-JNJFOC-20120200770

PATIENT
  Sex: Female
  Weight: 75.7 kg

DRUGS (3)
  1. IMURAN [Concomitant]
     Route: 048
  2. REMICADE [Suspect]
     Indication: CROHN'S DISEASE
     Route: 042
     Dates: start: 20101130
  3. REMICADE [Suspect]
     Dosage: 8TH INFUSION
     Route: 042
     Dates: start: 20111129

REACTIONS (5)
  - SWELLING [None]
  - RASH ERYTHEMATOUS [None]
  - PAIN [None]
  - DYSPEPSIA [None]
  - VOMITING [None]
